FAERS Safety Report 5772287-4 (Version None)
Quarter: 2008Q2

REPORT INFORMATION
  Report Type: 
  Country: None (occurrence: None)
  Receive Date: 20080613
  Receipt Date: 20080605
  Transmission Date: 20081010
  Serious: Yes (Hospitalization, Other)
  Sender: FDA-Public Use
  Company Number: PHFR2008GB01266

PATIENT
  Sex: Male

DRUGS (9)
  1. CLOZARIL [Suspect]
     Indication: SCHIZOPHRENIA
     Dosage: 300MG / DAY
     Route: 048
     Dates: start: 20050511
  2. HALOPERIDOL [Concomitant]
     Indication: PSYCHOTIC DISORDER
     Dosage: 10 MG, BID
     Route: 048
  3. DIAZEPAM [Concomitant]
     Indication: AGITATION
     Dosage: 10 MG, QD
     Route: 048
  4. FUROSEMIDE [Concomitant]
     Indication: HYPERTENSION
     Dosage: 40 MG, QD
     Route: 048
  5. ISOSORBIDE MONONITRATE [Concomitant]
     Indication: MYOCARDIAL ISCHAEMIA
     Dosage: 20 MG, BID
     Route: 048
  6. RAMIPRIL [Concomitant]
     Indication: HYPERTENSION
     Dosage: 2.5 MG, QD
     Route: 048
  7. ASPIRIN [Concomitant]
     Route: 065
  8. SIMVASTATIN [Concomitant]
     Route: 065
  9. PROCYCLIDINE HYDROCHLORIDE 2MG TAB [Concomitant]
     Indication: EXTRAPYRAMIDAL DISORDER
     Route: 065

REACTIONS (10)
  - BLADDER OBSTRUCTION [None]
  - BLOOD CREATININE INCREASED [None]
  - DIABETES MELLITUS [None]
  - GASTROINTESTINAL HAEMORRHAGE [None]
  - HAEMATURIA [None]
  - HAEMOGLOBIN DECREASED [None]
  - OBESITY [None]
  - PROSTATOMEGALY [None]
  - RED BLOOD CELL COUNT DECREASED [None]
  - RENAL FAILURE [None]
